FAERS Safety Report 10765926 (Version 2)
Quarter: 2015Q1

REPORT INFORMATION
  Report Type: Spontaneous
  Country: AU (occurrence: AU)
  Receive Date: 20150205
  Receipt Date: 20150211
  Transmission Date: 20150721
  Serious: Yes (Other)
  Sender: FDA-Public Use
  Company Number: AU-GLAXOSMITHKLINE-AU2015GSK014962

PATIENT
  Age: 59 Year
  Sex: Female

DRUGS (1)
  1. FLUTICASONE PROPIONATE. [Suspect]
     Active Substance: FLUTICASONE PROPIONATE
     Dosage: 500 UG, UNK
     Route: 055

REACTIONS (3)
  - Aspergillosis oral [Recovered/Resolved]
  - Cyst [Recovered/Resolved]
  - Dysphonia [Recovered/Resolved]
